FAERS Safety Report 16623667 (Version 1)
Quarter: 2019Q3

REPORT INFORMATION
  Report Type: Spontaneous
  Country: US (occurrence: US)
  Receive Date: 20190724
  Receipt Date: 20190724
  Transmission Date: 20191004
  Serious: Yes (Other)
  Sender: FDA-Public Use
  Company Number: US-AMGEN-USASP2019115753

PATIENT

DRUGS (1)
  1. REPATHA [Suspect]
     Active Substance: EVOLOCUMAB
     Indication: PRODUCT USED FOR UNKNOWN INDICATION
     Dosage: UNK
     Route: 065

REACTIONS (7)
  - Neck pain [Unknown]
  - Feeling abnormal [Unknown]
  - Back pain [Unknown]
  - Myocardial infarction [Unknown]
  - Influenza [Unknown]
  - Cerebrovascular accident [Unknown]
  - Nasopharyngitis [Unknown]
